FAERS Safety Report 8807853 (Version 2)
Quarter: 2012Q4

REPORT INFORMATION
  Report Type: 
  Country: FR (occurrence: FR)
  Receive Date: 20120925
  Receipt Date: 20121113
  Transmission Date: 20130627
  Serious: Yes (Hospitalization)
  Sender: FDA-Public Use
  Company Number: FR-VIIV HEALTHCARE LIMITED-B0831072A

PATIENT
  Age: 74 None
  Sex: Male

DRUGS (13)
  1. EPIVIR [Suspect]
     Indication: HIV INFECTION
     Dosage: 150MG Per day
     Route: 048
     Dates: start: 201112
  2. ISENTRESS [Suspect]
     Indication: HIV INFECTION
     Dosage: 400MG Twice per day
     Route: 048
     Dates: start: 201112, end: 20120830
  3. SIFROL [Suspect]
     Indication: PARKINSON^S DISEASE
     Dosage: 2.1MG Per day
     Route: 048
     Dates: start: 201202
  4. MODOPAR [Concomitant]
     Indication: PARKINSON^S DISEASE
     Route: 065
     Dates: start: 2010
  5. AZILECT [Concomitant]
     Indication: PARKINSON^S DISEASE
     Route: 065
     Dates: start: 2010
  6. BISOPROLOL [Concomitant]
  7. CRESTOR [Concomitant]
  8. RAMIPRIL [Concomitant]
  9. PREVISCAN [Concomitant]
     Dates: end: 20120803
  10. ALLOPURINOL [Concomitant]
  11. INIPOMP [Concomitant]
  12. ACUPAN [Concomitant]
  13. SUSTIVA [Concomitant]
     Indication: HIV INFECTION
     Dates: start: 2001

REACTIONS (6)
  - Aplastic anaemia [Not Recovered/Not Resolved]
  - Malaise [Unknown]
  - Vertigo [Unknown]
  - Vision blurred [Unknown]
  - Fall [Unknown]
  - Femoral neck fracture [None]
